FAERS Safety Report 15979742 (Version 2)
Quarter: 2019Q1

REPORT INFORMATION
  Report Type: Report from Study
  Country: IT (occurrence: IT)
  Receive Date: 20190219
  Receipt Date: 20190219
  Transmission Date: 20190418
  Serious: Yes (Hospitalization)
  Sender: FDA-Public Use
  Company Number: IT-B.I. PHARMACEUTICALS,INC./RIDGEFIELD-2019-12-000526

PATIENT
  Age: 10 Month
  Sex: Male

DRUGS (1)
  1. ATROVENT [Suspect]
     Active Substance: IPRATROPIUM BROMIDE
     Indication: ASTHMA
     Dosage: ; IN TOTAL
     Route: 055
     Dates: start: 20190201, end: 20190201

REACTIONS (2)
  - Medication error [Recovering/Resolving]
  - Sinus tachycardia [Recovering/Resolving]
